FAERS Safety Report 11229813 (Version 1)
Quarter: 2015Q2

REPORT INFORMATION
  Report Type: Report from Study
  Country: US (occurrence: US)
  Receive Date: 20150630
  Receipt Date: 20150630
  Transmission Date: 20150821
  Serious: Yes (Hospitalization)
  Sender: FDA-Public Use
  Company Number: US-TAKEDA-2015TUS008227

PATIENT
  Age: 43 Year
  Sex: Male
  Weight: 139.68 kg

DRUGS (1)
  1. NALTREXONE, BUPROPION [Suspect]
     Active Substance: BUPROPION HYDROCHLORIDE\NALTREXONE HYDROCHLORIDE
     Indication: OBESITY
     Dosage: 8/90 MG
     Route: 048
     Dates: start: 201505, end: 20150502

REACTIONS (2)
  - Drug titration error [Recovered/Resolved]
  - Intervertebral disc operation [Unknown]

NARRATIVE: CASE EVENT DATE: 20150608
